FAERS Safety Report 5471898-3 (Version None)
Quarter: 2007Q3

REPORT INFORMATION
  Report Type: 
  Country: None (occurrence: None)
  Receive Date: 20070928
  Receipt Date: 20070220
  Transmission Date: 20080115
  Serious: No
  Sender: FDA-Public Use
  Company Number: US-BRISTOL-MYERS SQUIBB COMPANY-13688544

PATIENT
  Age: 72 Year
  Sex: Female

DRUGS (1)
  1. DEFINITY [Suspect]
     Indication: ECHOCARDIOGRAM
     Dosage: 1.3 CC OF DEFINITY IN 8.7 CC NORMAL SALINE
     Route: 042
     Dates: start: 20070220

REACTIONS (2)
  - BACK PAIN [None]
  - CHEST PAIN [None]
